FAERS Safety Report 9078629 (Version 1)
Quarter: 2013Q1

REPORT INFORMATION
  Report Type: Report from Study
  Country: US (occurrence: US)
  Receive Date: 20130130
  Receipt Date: 20130130
  Transmission Date: 20140127
  Serious: No
  Sender: FDA-Public Use
  Company Number: US-ABBOTT-12P-163-0959224-00

PATIENT
  Age: 27 Year
  Sex: Female

DRUGS (5)
  1. HUMIRA 40 MG/0.8 ML PEN [Suspect]
     Indication: CROHN^S DISEASE
     Dates: start: 20120620, end: 20120620
  2. HUMIRA 40 MG/0.8 ML PEN [Suspect]
     Dates: start: 20120708, end: 20120708
  3. HUMIRA 40 MG/0.8 ML PEN [Suspect]
     Dates: start: 20120723
  4. NUVARING [Concomitant]
     Indication: CONTRACEPTION
  5. PREDNISONE [Concomitant]
     Indication: CROHN^S DISEASE
     Dosage: 10MG DAILY, WEANING OFF OF IT

REACTIONS (3)
  - Nasal mucosal discolouration [Recovering/Resolving]
  - Malaise [Recovering/Resolving]
  - Cough [Recovering/Resolving]
